FAERS Safety Report 5813812-4 (Version None)
Quarter: 2008Q3

REPORT INFORMATION
  Report Type: 
  Country: None (occurrence: None)
  Receive Date: 20080714
  Receipt Date: 20080704
  Transmission Date: 20090109
  Serious: Yes (Other)
  Sender: FDA-Public Use
  Company Number: 2008017735

PATIENT
  Sex: Male

DRUGS (1)
  1. VISINE A.C. (ZINC SULFATE, TETRYZOLINE) [Suspect]
     Indication: EYE IRRITATION
     Dosage: OPHTHALMIC
     Route: 047
     Dates: start: 20080703

REACTIONS (3)
  - EYE SWELLING [None]
  - FEELING HOT [None]
  - OCULAR HYPERAEMIA [None]
